FAERS Safety Report 10071412 (Version 1)
Quarter: 2014Q2

REPORT INFORMATION
  Report Type: Spontaneous
  Country: US (occurrence: US)
  Receive Date: 20140410
  Receipt Date: 20140410
  Transmission Date: 20141212
  Serious: Yes (Death, Other)
  Sender: FDA-Public Use
  Company Number: PHHY2014US041034

PATIENT
  Sex: 0

DRUGS (3)
  1. HEPARIN [Suspect]
     Indication: CEREBRAL ARTERY THROMBOSIS
     Route: 042
  2. CLOPIDOGREL [Suspect]
     Indication: ANTIPLATELET THERAPY
  3. WARFARIN [Suspect]

REACTIONS (4)
  - Death [Fatal]
  - Cerebral artery thrombosis [Unknown]
  - Gastrointestinal haemorrhage [Unknown]
  - Drug effect incomplete [Unknown]
